FAERS Safety Report 17195423 (Version 1)
Quarter: 2019Q4

REPORT INFORMATION
  Report Type: Spontaneous
  Country: FR (occurrence: FR)
  Receive Date: 20191224
  Receipt Date: 20191224
  Transmission Date: 20200122
  Serious: Yes (Hospitalization)
  Sender: FDA-Public Use
  Company Number: FR-TEVA-2019-FR-1156778

PATIENT
  Age: 52 Year
  Sex: Female
  Weight: 100 kg

DRUGS (15)
  1. PANTOPRAZOLE [Concomitant]
     Active Substance: PANTOPRAZOLE
  2. NOVORAPID [Concomitant]
     Active Substance: INSULIN ASPART
  3. LANTUS [Concomitant]
     Active Substance: INSULIN GLARGINE
  4. MOXONIDINE [Concomitant]
     Active Substance: MOXONIDINE
  5. MONTELUKAST [Concomitant]
     Active Substance: MONTELUKAST SODIUM
  6. METFORMINE ARROW 1000 MG, COMPRIME PELLICULE SECABLE [Suspect]
     Active Substance: METFORMIN HYDROCHLORIDE
     Indication: INSULIN-REQUIRING TYPE 2 DIABETES MELLITUS
     Dosage: 3 DOSAGE FORMS
     Route: 048
     Dates: end: 20191115
  7. GALVUS 50 MG, COMPRIM? [Concomitant]
     Active Substance: VILDAGLIPTIN
  8. ZITHROMAX [Suspect]
     Active Substance: AZITHROMYCIN DIHYDRATE
     Indication: UVEITIS
     Dosage: 1 DOSAGE FORMS
     Route: 048
     Dates: start: 20191105, end: 20191115
  9. FUROSEMIDE. [Concomitant]
     Active Substance: FUROSEMIDE
  10. ACICLOVIR [Suspect]
     Active Substance: ACYCLOVIR
     Indication: UVEITIS
     Dosage: 10 MG/KG
     Route: 042
     Dates: start: 20191105, end: 20191112
  11. MALOCIDE 50 MG, COMPRIME [Suspect]
     Active Substance: PYRIMETHAMINE
     Indication: UVEITIS
     Dosage: 50 MG
     Dates: start: 20191105, end: 20191115
  12. NEBIVOLOL. [Concomitant]
     Active Substance: NEBIVOLOL
  13. SERTIDE [Concomitant]
  14. ATORVASTATINE [Concomitant]
     Active Substance: ATORVASTATIN
  15. TARKA [Concomitant]
     Active Substance: TRANDOLAPRIL\VERAPAMIL HYDROCHLORIDE

REACTIONS (2)
  - Hypotension [Recovered/Resolved]
  - Acute kidney injury [Recovered/Resolved]

NARRATIVE: CASE EVENT DATE: 20191106
